FAERS Safety Report 5423934-8 (Version None)
Quarter: 2007Q3

REPORT INFORMATION
  Report Type: 
  Country: None (occurrence: None)
  Receive Date: 20070727
  Receipt Date: 20070405
  Transmission Date: 20080115
  Serious: No
  Sender: FDA-Public Use
  Company Number: 262532

PATIENT
  Age: 71 Year
  Sex: Male

DRUGS (3)
  1. LEVEMIR [Suspect]
     Indication: INSULIN-REQUIRING TYPE II DIABETES MELLITUS
     Dosage: 60 IU, QD, SUBCUTANEOUS; 62 IU, QD, SUBCUTANEOUS
     Route: 058
     Dates: start: 20061001, end: 20070301
  2. LEVEMIR [Suspect]
     Indication: INSULIN-REQUIRING TYPE II DIABETES MELLITUS
     Dosage: 60 IU, QD, SUBCUTANEOUS; 62 IU, QD, SUBCUTANEOUS
     Route: 058
     Dates: start: 20070301
  3. LEVEMIR [Suspect]

REACTIONS (1)
  - BLOOD GLUCOSE INCREASED [None]
